FAERS Safety Report 24063201 (Version 1)
Quarter: 2024Q3

REPORT INFORMATION
  Report Type: Spontaneous
  Country: US (occurrence: US)
  Receive Date: 20240709
  Receipt Date: 20240709
  Transmission Date: 20241016
  Serious: No
  Sender: ROCHE
  Company Number: US-ROCHE-10000019225

PATIENT
  Sex: Female

DRUGS (2)
  1. XOLAIR [Suspect]
     Active Substance: OMALIZUMAB
     Indication: Asthma
     Dosage: ROUTE UNDER THE SKIN, STRENGTH 150 MG/ML
     Route: 065
     Dates: start: 202404
  2. XOLAIR [Suspect]
     Active Substance: OMALIZUMAB

REACTIONS (3)
  - Thyroid function test abnormal [Unknown]
  - Tri-iodothyronine increased [Unknown]
  - Menstrual disorder [Unknown]
